FAERS Safety Report 8603979-7 (Version None)
Quarter: 2012Q3

REPORT INFORMATION
  Report Type: 
  Country: None (occurrence: None)
  Receive Date: 20120820
  Receipt Date: 20120810
  Transmission Date: 20120928
  Serious: Yes (Hospitalization)
  Sender: FDA-Public Use
  Company Number: US-BIOGENIDEC-2012BI030763

PATIENT
  Sex: Male

DRUGS (4)
  1. AVONEX [Suspect]
     Route: 030
     Dates: start: 20030101, end: 20120701
  2. TYSABRI [Concomitant]
     Indication: MULTIPLE SCLEROSIS
     Route: 042
     Dates: start: 20050101, end: 20050101
  3. AVONEX [Suspect]
     Indication: MULTIPLE SCLEROSIS
     Route: 030
     Dates: start: 19970101, end: 20030101
  4. AVONEX [Suspect]
     Route: 030
     Dates: start: 20120701

REACTIONS (4)
  - ATRIAL FIBRILLATION [None]
  - HEART RATE IRREGULAR [None]
  - HYPERTENSION [None]
  - MALAISE [None]
